FAERS Safety Report 21584562 (Version 2)
Quarter: 2022Q4

REPORT INFORMATION
  Report Type: Report from Study
  Country: US (occurrence: US)
  Receive Date: 20221111
  Receipt Date: 20221208
  Transmission Date: 20230112
  Serious: Yes (Other)
  Sender: FDA-Public Use
  Company Number: US-PFIZER INC-202200427301

PATIENT
  Age: 59 Year
  Sex: Female

DRUGS (5)
  1. IBRANCE [Suspect]
     Active Substance: PALBOCICLIB
     Indication: Breast cancer female
     Dosage: 75 MG, CYCLIC (DAILY FOR 21 DAYS ON WITH 7 DAYS OFF)
     Route: 048
     Dates: start: 20220302
  2. IBRANCE [Suspect]
     Active Substance: PALBOCICLIB
     Dosage: 75 MG, CYCLIC (DAILY FOR 21 DAYS ON WITH 7 DAYS OFF)
     Route: 048
     Dates: start: 20220505, end: 2022
  3. IBRANCE [Suspect]
     Active Substance: PALBOCICLIB
     Dosage: 75 MG, CYCLIC (DAILY FOR 21 DAYS ON WITH 7 DAYS OFF)
     Route: 048
     Dates: start: 20221101
  4. FASLODEX [Concomitant]
     Active Substance: FULVESTRANT
     Dosage: UNK
  5. XGEVA [Concomitant]
     Active Substance: DENOSUMAB
     Dosage: UNK

REACTIONS (34)
  - White blood cell count decreased [Recovering/Resolving]
  - Neutropenia [Unknown]
  - Neuropathy peripheral [Recovering/Resolving]
  - Condition aggravated [Not Recovered/Not Resolved]
  - Haematochezia [Unknown]
  - Off label use [Unknown]
  - Nausea [Not Recovered/Not Resolved]
  - Fatigue [Recovering/Resolving]
  - Dyspnoea [Not Recovered/Not Resolved]
  - Muscular weakness [Unknown]
  - Oral pain [Unknown]
  - Rash [Unknown]
  - Pruritus [Unknown]
  - Peripheral swelling [Unknown]
  - Lymph node pain [Unknown]
  - Platelet count decreased [Unknown]
  - Full blood count decreased [Unknown]
  - Hot flush [Not Recovered/Not Resolved]
  - Paraesthesia [Unknown]
  - Alopecia [Not Recovered/Not Resolved]
  - Diarrhoea [Not Recovered/Not Resolved]
  - Oral pain [Not Recovered/Not Resolved]
  - Haemorrhoids [Unknown]
  - Back pain [Not Recovered/Not Resolved]
  - Arthralgia [Unknown]
  - Neuralgia [Unknown]
  - Nervousness [Not Recovered/Not Resolved]
  - Hepatic pain [Recovered/Resolved]
  - Bone pain [Recovering/Resolving]
  - Neck pain [Recovering/Resolving]
  - Decreased appetite [Unknown]
  - Increased upper airway secretion [Unknown]
  - Periorbital oedema [Unknown]
  - Eye swelling [Unknown]

NARRATIVE: CASE EVENT DATE: 20220101
